FAERS Safety Report 4600804-6 (Version None)
Quarter: 2005Q1

REPORT INFORMATION
  Report Type: 
  Country: None (occurrence: None)
  Receive Date: 20050304
  Receipt Date: 20050228
  Transmission Date: 20050727
  Serious: Yes (Death, Hospitalization, Other)
  Sender: FDA-Public Use
  Company Number: 16302-1

PATIENT
  Age: 74 Year
  Sex: Male
  Weight: 60.782 kg

DRUGS (1)
  1. DAUNORUBICIN HCL [Suspect]
     Indication: ACUTE MYELOID LEUKAEMIA
     Dosage: 45 MG/M2 OTHER
     Route: 050
     Dates: start: 20040916

REACTIONS (6)
  - ANOREXIA [None]
  - CATHETER RELATED INFECTION [None]
  - COLITIS [None]
  - NAUSEA [None]
  - PNEUMONITIS [None]
  - RENAL FAILURE ACUTE [None]
